FAERS Safety Report 15937731 (Version 1)
Quarter: 2019Q1

REPORT INFORMATION
  Report Type: Spontaneous
  Country: US (occurrence: US)
  Receive Date: 20190117
  Receipt Date: 20190117
  Transmission Date: 20190417
  Serious: Yes (Life-Threatening)
  Sender: FDA-Public Use
  Company Number: None

PATIENT
  Age: 54 Year
  Sex: Female
  Weight: 106.59 kg

DRUGS (2)
  1. CEFTRIAXONE 1000MG VIAL UNKNOWN [Suspect]
     Active Substance: CEFTRIAXONE
     Indication: PYELONEPHRITIS
     Route: 042
     Dates: start: 20180910
  2. KETOROLAC [Suspect]
     Active Substance: KETOROLAC\KETOROLAC TROMETHAMINE
     Route: 042
     Dates: start: 20180910

REACTIONS (2)
  - Cardio-respiratory arrest [None]
  - Angioedema [None]

NARRATIVE: CASE EVENT DATE: 20180910
